FAERS Safety Report 15862061 (Version 1)
Quarter: 2019Q1

REPORT INFORMATION
  Report Type: Spontaneous
  Country: FR (occurrence: FR)
  Receive Date: 20190124
  Receipt Date: 20190124
  Transmission Date: 20190417
  Serious: Yes (Hospitalization, Other)
  Sender: FDA-Public Use
  Company Number: FR-SA-2019SA015858

PATIENT
  Age: 19 Year
  Sex: Female
  Weight: 61 kg

DRUGS (7)
  1. LIDOCAINE. [Suspect]
     Active Substance: LIDOCAINE
     Indication: INDUCTION OF ANAESTHESIA
     Dosage: 50 MG, TOTAL
     Route: 042
     Dates: start: 20170310, end: 20170310
  2. SUCCINYLCHOLINE CHLORIDE. [Suspect]
     Active Substance: SUCCINYLCHOLINE CHLORIDE
     Indication: INDUCTION OF ANAESTHESIA
     Dosage: 60 MG, TOTAL
     Route: 042
     Dates: start: 20170310, end: 20170310
  3. PROPOFOL. [Suspect]
     Active Substance: PROPOFOL
     Indication: INDUCTION OF ANAESTHESIA
     Dosage: 60 MG, 1X
     Route: 042
     Dates: start: 20170310, end: 20170310
  4. LIDOCAINE. [Suspect]
     Active Substance: LIDOCAINE
     Dosage: 60 MG, TOTAL
     Route: 042
     Dates: start: 20170310, end: 20170310
  5. BETAMETHASONE. [Suspect]
     Active Substance: BETAMETHASONE
     Indication: INDUCTION OF ANAESTHESIA
     Dosage: 60 MG, TOTAL
     Route: 042
     Dates: start: 20170310, end: 20170310
  6. BETAMETHASONE. [Suspect]
     Active Substance: BETAMETHASONE
     Dosage: 4 MG, TOTAL
     Route: 042
     Dates: start: 20170310, end: 20170310
  7. PROPOFOL. [Suspect]
     Active Substance: PROPOFOL
     Dosage: 300 MG, TOTAL
     Route: 042
     Dates: start: 20170310, end: 20170310

REACTIONS (1)
  - Anaphylactic shock [Recovered/Resolved]

NARRATIVE: CASE EVENT DATE: 20170310
